FAERS Safety Report 13955783 (Version 3)
Quarter: 2019Q1

REPORT INFORMATION
  Report Type: Spontaneous
  Country: US (occurrence: US)
  Receive Date: 20170911
  Receipt Date: 20190220
  Transmission Date: 20190417
  Serious: No
  Sender: FDA-Public Use
  Company Number: US-DSJP-DSU-2017-136225

PATIENT

DRUGS (6)
  1. BENICAR HCT [Suspect]
     Active Substance: HYDROCHLOROTHIAZIDE\OLMESARTAN MEDOXOMIL
     Dosage: 40-25MG, UNK
  2. BENICAR HCT [Suspect]
     Active Substance: HYDROCHLOROTHIAZIDE\OLMESARTAN MEDOXOMIL
     Indication: HYPERTENSION
     Dosage: 20-12.5 MG , QD
     Route: 048
     Dates: start: 20091125, end: 20170714
  3. BENICAR [Suspect]
     Active Substance: OLMESARTAN MEDOXOMIL
     Dosage: 5 MG, QD
     Dates: start: 20140904, end: 20150522
  4. BENICAR [Suspect]
     Active Substance: OLMESARTAN MEDOXOMIL
     Indication: HYPERTENSION
     Dosage: 20 MG, UNK
     Dates: end: 20140825
  5. BENICAR [Suspect]
     Active Substance: OLMESARTAN MEDOXOMIL
     Dosage: 20 MG, 0.5 TAB DAILY
     Dates: start: 20140825, end: 20140904
  6. BENICAR [Suspect]
     Active Substance: OLMESARTAN MEDOXOMIL
     Dosage: 5 MG, QD

REACTIONS (4)
  - Gastrooesophageal reflux disease [Unknown]
  - Constipation [Unknown]
  - Weight decreased [Recovered/Resolved]
  - Product administration error [Recovered/Resolved]

NARRATIVE: CASE EVENT DATE: 2012
